FAERS Safety Report 5158001-4 (Version None)
Quarter: 2006Q4

REPORT INFORMATION
  Report Type: 
  Country: None (occurrence: None)
  Receive Date: 20061115
  Receipt Date: 20061103
  Transmission Date: 20070319
  Serious: Yes (Hospitalization)
  Sender: FDA-Public Use
  Company Number: 2006091562

PATIENT
  Age: 72 Year
  Sex: Male
  Weight: 74 kg

DRUGS (18)
  1. SUTENT [Suspect]
     Indication: METASTATIC RENAL CELL CARCINOMA
     Dosage: 50 MG (50 MG, 1 IN 1 D), ORAL
     Route: 048
     Dates: start: 20060629
  2. PANTOPRAZOLE SODIUM [Concomitant]
  3. ACETYLCYSTEINE [Concomitant]
  4. ESOMEPRAZOLE (ESOMEPRAZOLE) [Concomitant]
  5. BETA-ACETYLDIGOXIN (BETA-ACETYLDIGOXIN) [Concomitant]
  6. DIPYRONE TAB [Concomitant]
  7. BISOPROLOL FUMARATE [Concomitant]
  8. PREGABALIN (PREGABALIN) [Concomitant]
  9. OXYCODONE HCL [Concomitant]
  10. METOCLOPRAMIDE [Concomitant]
  11. MOVICOL (MACROGOL, POTASSIUM CHLORIDE, SODIUM BICARBONATE, SODIUM CHLO [Concomitant]
  12. SODIUM PICOSULFATE (SODIUM PICOSULFATE) [Concomitant]
  13. TINZAPARIN SODIUM (HEPARIN-FRACTION, SODIUM SALT) [Concomitant]
  14. DIMETICONE (DIMETICONE) [Concomitant]
  15. ACETYLSALICYLIC ACID SRT [Concomitant]
  16. DICLOFENAC SODIUM [Concomitant]
  17. METOPROLOL TARTRATE [Concomitant]
  18. ACYCLOVIR [Concomitant]

REACTIONS (1)
  - PNEUMONIA [None]
